FAERS Safety Report 21082337 (Version 1)
Quarter: 2022Q3

REPORT INFORMATION
  Report Type: Report from Study
  Country: US (occurrence: US)
  Receive Date: 20220714
  Receipt Date: 20220714
  Transmission Date: 20221027
  Serious: Yes (Other)
  Sender: FDA-Public Use
  Company Number: US-TAKEDA-2022TUS046491

PATIENT
  Sex: Female

DRUGS (1)
  1. MARIBAVIR [Suspect]
     Active Substance: MARIBAVIR
     Indication: Acute lymphocytic leukaemia
     Dosage: 200 MILLIGRAM, BID
     Route: 048
     Dates: start: 20220625

REACTIONS (3)
  - Bone marrow transplant [Unknown]
  - Blood test abnormal [Recovering/Resolving]
  - Off label use [Unknown]
